FAERS Safety Report 5851846-4 (Version None)
Quarter: 2008Q3

REPORT INFORMATION
  Report Type: 
  Country: None (occurrence: None)
  Receive Date: 20080819
  Receipt Date: 20080806
  Transmission Date: 20090109
  Serious: Yes (Disabling, Other)
  Sender: FDA-Public Use
  Company Number: 2008AL009517

PATIENT
  Age: 63 Year
  Sex: Female

DRUGS (8)
  1. AMLODIPINE BESYLATE [Suspect]
     Indication: HYPERTENSION
     Dosage: 5 MG; QD; PO
     Route: 048
     Dates: start: 20071127, end: 20080105
  2. PREDNISONE TAB [Concomitant]
  3. FUROSEMIDE [Concomitant]
  4. PREGADAY [Concomitant]
  5. CYANOCOBALAMIN [Concomitant]
  6. CANDESARTAN [Concomitant]
  7. OMEPRAZOLE [Concomitant]
  8. INDAPAMIDE [Concomitant]

REACTIONS (2)
  - DEPRESSION [None]
  - SUICIDAL IDEATION [None]
